FAERS Safety Report 20302757 (Version 1)
Quarter: 2022Q1

REPORT INFORMATION
  Report Type: Other
  Country: None (occurrence: ES)
  Receive Date: 20220106
  Receipt Date: 20220106
  Transmission Date: 20220424
  Serious: Yes (Other)
  Sender: FDA-Public Use
  Company Number: ES-Nuvo Pharmaceuticals Inc-2123657

PATIENT
  Age: 30 Year
  Sex: Male

DRUGS (3)
  1. DIAZEPAM [Suspect]
     Active Substance: DIAZEPAM
     Indication: Status epilepticus
     Route: 040
  2. LACOSAMIDE [Suspect]
     Active Substance: LACOSAMIDE
     Route: 065
  3. LEVETIRACETAM [Suspect]
     Active Substance: LEVETIRACETAM
     Route: 065

REACTIONS (1)
  - Drug ineffective [Unknown]
